FAERS Safety Report 8911463 (Version 1)
Quarter: 2012Q4

REPORT INFORMATION
  Report Type: 
  Country: US (occurrence: US)
  Receive Date: 20121115
  Receipt Date: 20121115
  Transmission Date: 20130627
  Serious: No
  Sender: FDA-Public Use
  Company Number: US-PFIZER INC-2012073801

PATIENT
  Age: 64 Year
  Sex: Female
  Weight: 95.24 kg

DRUGS (12)
  1. LIPITOR [Suspect]
     Indication: HIGH CHOLESTEROL
     Dosage: 20mg daily at night
     Route: 048
     Dates: start: 201207
  2. LIPITOR [Suspect]
     Dosage: 40 mg, daily
     Route: 048
     Dates: start: 2012
  3. GLUCOTROL [Concomitant]
     Dosage: 10 mg, UNK
     Route: 048
  4. LOPID [Concomitant]
     Dosage: 600 mg, UNK
     Route: 048
  5. GLUCOPHAGE [Concomitant]
     Dosage: 1000 mg, UNK
     Route: 048
  6. PRINIVIL [Concomitant]
     Dosage: 10 mg, UNK
     Route: 048
  7. ZESTRIL [Concomitant]
     Dosage: 10 mg, UNK
     Route: 048
  8. HYDRODIURIL [Concomitant]
     Dosage: 25 mg, UNK
     Route: 048
  9. ACTOS [Concomitant]
     Dosage: 15 mg, UNK
     Route: 048
  10. DEPAKOTE [Concomitant]
     Dosage: UNK
  11. EPIPEN [Concomitant]
     Dosage: UNK
     Route: 030
  12. ACETYLSALICYLIC ACID [Concomitant]
     Dosage: 325 mg, UNK
     Route: 048

REACTIONS (1)
  - Hair texture abnormal [Unknown]
